FAERS Safety Report 17149487 (Version 1)
Quarter: 2019Q4

REPORT INFORMATION
  Report Type: Spontaneous
  Country: US (occurrence: US)
  Receive Date: 20191213
  Receipt Date: 20191213
  Transmission Date: 20200122
  Serious: Yes (Hospitalization)
  Sender: FDA-Public Use
  Company Number: US-EMCURE PHARMACEUTICALS LTD-2019-EPL-1176

PATIENT
  Age: 42 Year
  Sex: Male
  Weight: 107.6 kg

DRUGS (10)
  1. REMIFENTANIL [Concomitant]
     Active Substance: REMIFENTANIL
     Indication: ANAESTHESIA
     Dosage: 0.1 ?G/KG/MIN, MAINTENANCE DOSE
  2. ROCURONIUM [Concomitant]
     Active Substance: ROCURONIUM BROMIDE
     Indication: ANAESTHESIA
     Dosage: 70 MILLIGRAM
     Route: 042
  3. PROPOFOL. [Concomitant]
     Active Substance: PROPOFOL
     Indication: ANAESTHESIA
     Dosage: 100 MILLIGRAM
     Route: 042
  4. NORMOSOL-R [Concomitant]
     Active Substance: MAGNESIUM CHLORIDE\POTASSIUM CHLORIDE\SODIUM ACETATE ANHYDROUS\SODIUM CHLORIDE\SODIUM GLUCONATE
     Dosage: 140 MEQ OF SODIUM, 5 MEQ OF POTASSIUM, 3 MEQ OF MAGNESIUM, 98 MEQ OF CHLORIDE, 27 MEQ OF ACETATE, AN
  5. PROPOFOL. [Concomitant]
     Active Substance: PROPOFOL
     Dosage: 50 ?G/KG/H, MAINTENANCE DOSE
     Route: 042
  6. ACETAZOLAMIDE SODIUM. [Suspect]
     Active Substance: ACETAZOLAMIDE SODIUM
     Indication: MOYAMOYA DISEASE
     Dosage: 1000 MILLIGRAM, SINGLE DOSE
     Route: 040
  7. FENTANYL. [Concomitant]
     Active Substance: FENTANYL
     Indication: ANAESTHESIA
     Dosage: 250 MICROGRAM
     Route: 042
  8. CEFAZOLIN [Concomitant]
     Active Substance: CEFAZOLIN
     Dosage: 2 GRAM
     Route: 042
  9. SEVOFLURANE. [Concomitant]
     Active Substance: SEVOFLURANE
     Indication: ANAESTHESIA
     Dosage: 0.5 MINIMUM ALVEOLAR CONCENTRATION, MAINTENANCE DOSE
  10. DEXAMETHASONE. [Concomitant]
     Active Substance: DEXAMETHASONE
     Dosage: 8 MILLIGRAM
     Route: 042

REACTIONS (3)
  - Hyperkalaemia [Recovered/Resolved]
  - Metabolic acidosis [Recovered/Resolved]
  - Off label use [Unknown]
